FAERS Safety Report 10897881 (Version 3)
Quarter: 2015Q2

REPORT INFORMATION
  Report Type: Spontaneous
  Country: FR (occurrence: FR)
  Receive Date: 20150309
  Receipt Date: 20150624
  Transmission Date: 20150821
  Serious: Yes (Hospitalization)
  Sender: FDA-Public Use
  Company Number: FR-IPSEN BIOPHARMACEUTICALS, INC.-2015-3632

PATIENT
  Age: 54 Year
  Sex: Female

DRUGS (9)
  1. INNOVAIR [Concomitant]
     Active Substance: BECLOMETHASONE DIPROPIONATE\FORMOTEROL
     Indication: PRODUCT USED FOR UNKNOWN INDICATION
     Dosage: NOT REPORTED
     Route: 065
  2. SOMATULINE L.P. 90MG [Suspect]
     Active Substance: LANREOTIDE ACETATE
     Indication: GASTROINTESTINAL DISORDER
     Dosage: 90MG
     Route: 058
     Dates: start: 20140916, end: 201411
  3. SOMATULINE L.P. 90MG [Suspect]
     Active Substance: LANREOTIDE ACETATE
     Indication: PRODUCT USE ISSUE
     Dosage: 60MG
     Route: 058
     Dates: start: 201411, end: 201412
  4. OMEPRAZOLE. [Concomitant]
     Active Substance: OMEPRAZOLE
     Indication: PRODUCT USED FOR UNKNOWN INDICATION
     Dosage: NOT REPORTED
     Route: 065
  5. SOMATULINE L.P. 90MG [Suspect]
     Active Substance: LANREOTIDE ACETATE
     Dosage: 90MG
     Route: 058
     Dates: start: 201412, end: 2015
  6. ALPHAGAN P [Concomitant]
     Active Substance: BRIMONIDINE TARTRATE
     Indication: PRODUCT USED FOR UNKNOWN INDICATION
     Dosage: NOT REPORTED
     Route: 065
  7. VENTOLIN [Concomitant]
     Active Substance: ALBUTEROL SULFATE
     Indication: PRODUCT USED FOR UNKNOWN INDICATION
     Dosage: NOT REPORTED
     Route: 065
  8. LEVOTHYROX [Concomitant]
     Active Substance: LEVOTHYROXINE
     Indication: PRODUCT USED FOR UNKNOWN INDICATION
     Dosage: NOT REPORTED
     Route: 065
  9. SPASFON [Concomitant]
     Active Substance: PHLOROGLUCINOL
     Indication: PRODUCT USED FOR UNKNOWN INDICATION
     Dosage: NOT REPORTED
     Route: 065

REACTIONS (5)
  - Hypoglycaemic seizure [Unknown]
  - Fall [Unknown]
  - Malaise [Unknown]
  - Off label use [None]
  - Hypoglycaemia [Unknown]

NARRATIVE: CASE EVENT DATE: 201409
